FAERS Safety Report 22174203 (Version 1)
Quarter: 2023Q2

REPORT INFORMATION
  Report Type: Spontaneous
  Country: NL (occurrence: NL)
  Receive Date: 20230405
  Receipt Date: 20230405
  Transmission Date: 20230721
  Serious: Yes (Other)
  Sender: FDA-Public Use
  Company Number: NL-AMGEN-NLDSP2023056938

PATIENT
  Sex: Female
  Weight: 85 kg

DRUGS (1)
  1. ROMIPLOSTIM [Suspect]
     Active Substance: ROMIPLOSTIM
     Indication: Immune thrombocytopenia
     Dosage: 1X PER WEEK 50ML
     Route: 065
     Dates: start: 20220819

REACTIONS (1)
  - Hemihypoaesthesia [Not Recovered/Not Resolved]
